FAERS Safety Report 13023984 (Version 1)
Quarter: 2016Q4

REPORT INFORMATION
  Report Type: Spontaneous
  Country: GB (occurrence: GB)
  Receive Date: 20161213
  Receipt Date: 20161213
  Transmission Date: 20170207
  Serious: Yes (Other)
  Sender: FDA-Public Use
  Company Number: GB-MYLANLABS-2016M1054564

PATIENT

DRUGS (1)
  1. CLOZARIL [Suspect]
     Active Substance: CLOZAPINE
     Indication: SCHIZOPHRENIA
     Dosage: UNK
     Route: 048
     Dates: start: 20121220

REACTIONS (4)
  - Blood fibrinogen increased [Unknown]
  - Lower respiratory tract infection [Unknown]
  - Troponin T increased [Unknown]
  - Sepsis [Unknown]

NARRATIVE: CASE EVENT DATE: 20161206
